FAERS Safety Report 8762567 (Version 1)
Quarter: 2012Q4

REPORT INFORMATION
  Report Type: 
  Country: FR (occurrence: FR)
  Receive Date: 20120830
  Receipt Date: 20120830
  Transmission Date: 20130627
  Serious: Yes (Hospitalization)
  Sender: FDA-Public Use
  Company Number: FR-ROCHE-1108755

PATIENT
  Age: 60 Year
  Sex: Female

DRUGS (3)
  1. PEGASYS [Suspect]
     Indication: HEPATITIS C
  2. COPEGUS [Suspect]
     Indication: HEPATITIS C
  3. VICTRELIS [Suspect]
     Indication: HEPATITIS C

REACTIONS (1)
  - Septic shock [Not Recovered/Not Resolved]
